FAERS Safety Report 17860202 (Version 1)
Quarter: 2020Q2

REPORT INFORMATION
  Report Type: Report from Study
  Country: IT (occurrence: IT)
  Receive Date: 20200604
  Receipt Date: 20200604
  Transmission Date: 20200714
  Serious: Yes (Hospitalization)
  Sender: FDA-Public Use
  Company Number: IT-ACCORD-183982

PATIENT
  Age: 37 Year
  Sex: Female

DRUGS (9)
  1. RAMIPRIL. [Suspect]
     Active Substance: RAMIPRIL
     Indication: HYPERTENSION
     Dates: start: 20200101, end: 20200516
  2. KCL-RETARD [Concomitant]
     Active Substance: POTASSIUM CHLORIDE
     Dosage: STRENGTH: 600 MG
  3. COUMADIN [Concomitant]
     Active Substance: WARFARIN SODIUM
     Dosage: STRENGTH: 5 MG
  4. METFORMIN [Concomitant]
     Active Substance: METFORMIN HYDROCHLORIDE
  5. MEDROL [Concomitant]
     Active Substance: METHYLPREDNISOLONE
     Dosage: STRENGTH: 16 MG
  6. EUTIROX [Concomitant]
     Active Substance: LEVOTHYROXINE SODIUM
  7. BISOPROLOL [Suspect]
     Active Substance: BISOPROLOL
     Indication: HYPERTENSION
     Dates: start: 20200101, end: 20200516
  8. TRITTICO [Suspect]
     Active Substance: TRAZODONE HYDROCHLORIDE
     Indication: DEPRESSION
     Dates: start: 20200101, end: 20200516
  9. LUVION (CANRENOIC ACID) [Suspect]
     Active Substance: CANRENOIC ACID
     Indication: HYPERTENSION
     Dates: start: 20200101, end: 20200516

REACTIONS (3)
  - Confusional state [Unknown]
  - Atrioventricular block [Unknown]
  - Dysarthria [Unknown]

NARRATIVE: CASE EVENT DATE: 20200516
